FAERS Safety Report 9457317 (Version 2)
Quarter: 2014Q2

REPORT INFORMATION
  Report Type: Report from Study
  Country: CA (occurrence: CA)
  Receive Date: 20130814
  Receipt Date: 20140602
  Transmission Date: 20141212
  Serious: Yes (Other)
  Sender: FDA-Public Use
  Company Number: PHHY2013CA085107

PATIENT
  Age: 24 Year
  Sex: Female

DRUGS (4)
  1. GILENYA [Suspect]
     Indication: RELAPSING-REMITTING MULTIPLE SCLEROSIS
     Dosage: 0.5 MG, QD
     Dates: start: 20120612
  2. GILENYA [Suspect]
     Dosage: 0.5 MG, QD
     Route: 048
     Dates: start: 20120925
  3. TYSABRI [Suspect]
     Dosage: 1 DF, QMO
  4. VIT D [Concomitant]

REACTIONS (3)
  - Hypoaesthesia [Recovering/Resolving]
  - Migraine with aura [Recovered/Resolved]
  - Inappropriate schedule of drug administration [Unknown]
